FAERS Safety Report 18057317 (Version 1)
Quarter: 2020Q3

REPORT INFORMATION
  Report Type: Spontaneous
  Country: CO (occurrence: CO)
  Receive Date: 20200722
  Receipt Date: 20200722
  Transmission Date: 20201103
  Serious: Yes (Hospitalization)
  Sender: FDA-Public Use
  Company Number: CO-BIOMARINAP-CO-2020-131088

PATIENT
  Age: 21 Year
  Sex: Male
  Weight: 30 kg

DRUGS (1)
  1. NAGLAZYME [Suspect]
     Active Substance: GALSULFASE
     Indication: MUCOPOLYSACCHARIDOSIS VI
     Dosage: UNK, QW
     Route: 042

REACTIONS (4)
  - Diarrhoea [Recovering/Resolving]
  - Wound secretion [Recovering/Resolving]
  - Blood pressure increased [Recovering/Resolving]
  - Spinal operation [Recovering/Resolving]

NARRATIVE: CASE EVENT DATE: 20200704
